FAERS Safety Report 4708034-4 (Version None)
Quarter: 2005Q3

REPORT INFORMATION
  Report Type: 
  Country: None (occurrence: None)
  Receive Date: 20050707
  Receipt Date: 20050627
  Transmission Date: 20060218
  Serious: Yes (Hospitalization)
  Sender: FDA-Public Use
  Company Number: FR-BRISTOL-MYERS SQUIBB COMPANY-13018049

PATIENT
  Age: 85 Year
  Sex: Female

DRUGS (7)
  1. COUMADIN [Suspect]
     Route: 048
     Dates: start: 20050115, end: 20050603
  2. TEMESTA [Concomitant]
  3. MODOPAR [Concomitant]
  4. CORDARONE [Concomitant]
  5. ATARAX [Concomitant]
  6. COLPOTROPHINE [Concomitant]
     Route: 067
     Dates: end: 20050604
  7. DEXAGRANE [Concomitant]
     Dates: end: 20050604

REACTIONS (5)
  - HAEMATEMESIS [None]
  - HAEMATOMA [None]
  - LOSS OF CONSCIOUSNESS [None]
  - MALAISE [None]
  - NECROSIS [None]
